FAERS Safety Report 6579451-5 (Version None)
Quarter: 2010Q1

REPORT INFORMATION
  Report Type: 
  Country: None (occurrence: None)
  Receive Date: 20100212
  Receipt Date: 20100112
  Transmission Date: 20100710
  Serious: No
  Sender: FDA-Public Use
  Company Number: US-BAYER-201010748BCC

PATIENT
  Age: 51 Year
  Sex: Female

DRUGS (4)
  1. ALEVE (CAPLET) [Suspect]
     Indication: PAIN
     Dosage: CONSUMER TOOK ALEVE ON 3 UNKNOWN DATES
     Route: 048
  2. MIDOL [Suspect]
     Indication: DYSMENORRHOEA
     Dosage: TOTAL DAILY DOSE: 440 MG  UNIT DOSE: 220 MG
     Route: 048
     Dates: start: 20100111
  3. FISH OIL [Concomitant]
     Route: 065
  4. ONE A DAY WOMEN'S 50 PLUS ADVANTAGE [Concomitant]
     Route: 065

REACTIONS (5)
  - ABDOMINAL DISTENSION [None]
  - DYSMENORRHOEA [None]
  - HEADACHE [None]
  - PAIN [None]
  - SWELLING [None]
